FAERS Safety Report 22175883 (Version 1)
Quarter: 2023Q2

REPORT INFORMATION
  Report Type: Spontaneous
  Country: GB (occurrence: GB)
  Receive Date: 20230405
  Receipt Date: 20230405
  Transmission Date: 20230722
  Serious: Yes (Death, Hospitalization)
  Sender: FDA-Public Use
  Company Number: GB-LDELTA-NLLD0035686

PATIENT
  Age: 44 Year
  Sex: Male
  Weight: 86 kg

DRUGS (5)
  1. MORPHINE SULFATE [Suspect]
     Active Substance: MORPHINE SULFATE
     Indication: Product used for unknown indication
     Dosage: UNK
     Route: 065
  2. COCAINE [Suspect]
     Active Substance: COCAINE
     Indication: Product used for unknown indication
     Dosage: UNK
     Route: 065
  3. DIAZEPAM [Suspect]
     Active Substance: DIAZEPAM
     Indication: Product used for unknown indication
     Dosage: UNK
     Route: 065
  4. METHADONE [Suspect]
     Active Substance: METHADONE HYDROCHLORIDE
     Indication: Product used for unknown indication
     Dosage: UNK
     Route: 065
  5. CLOZAPINE [Suspect]
     Active Substance: CLOZAPINE
     Indication: Schizophrenia
     Dosage: UNK
     Route: 065
     Dates: start: 20200922, end: 20201113

REACTIONS (7)
  - Toxicity to various agents [Fatal]
  - Cardiopulmonary failure [Fatal]
  - Rhabdomyolysis [Fatal]
  - Acute myocardial infarction [Fatal]
  - Splenomegaly [Fatal]
  - Arteriosclerosis coronary artery [Fatal]
  - Hepatic steatosis [Fatal]

NARRATIVE: CASE EVENT DATE: 20201113
